FAERS Safety Report 23116186 (Version 1)
Quarter: 2023Q4

REPORT INFORMATION
  Report Type: Report from Study
  Country: US (occurrence: US)
  Receive Date: 20231027
  Receipt Date: 20231027
  Transmission Date: 20240109
  Serious: Yes (Hospitalization, Other)
  Sender: FDA-Public Use
  Company Number: US-PFIZER INC-2012247971

PATIENT
  Age: 67 Year
  Sex: Male
  Weight: 72 kg

DRUGS (15)
  1. PALBOCICLIB [Suspect]
     Active Substance: PALBOCICLIB
     Indication: Non-small cell lung cancer metastatic
     Dosage: DAILY, DAYS 1-21/28 DAY CYCLE
     Route: 048
     Dates: start: 20120911, end: 20121002
  2. SIMVASTATIN [Suspect]
     Active Substance: SIMVASTATIN
     Indication: Blood cholesterol increased
     Dosage: 80 MG, DAILY
     Route: 048
     Dates: start: 1999, end: 20121005
  3. MEGACE [Concomitant]
     Active Substance: MEGESTROL ACETATE
     Indication: Increased appetite
     Dosage: 40 MG, 2X/DAY
     Route: 048
     Dates: start: 201209
  4. PERCOCET [Concomitant]
     Active Substance: ACETAMINOPHEN\OXYCODONE HYDROCHLORIDE
     Indication: Pain
     Dosage: 325/5, AS NEEDED
     Route: 048
     Dates: start: 2000
  5. AMBIEN [Concomitant]
     Active Substance: ZOLPIDEM TARTRATE
     Indication: Sleep disorder therapy
     Dosage: 10 MG, QHS
     Dates: start: 2011
  6. TEMAZEPAM [Concomitant]
     Active Substance: TEMAZEPAM
     Dosage: 15 MG, QHS
     Dates: start: 2011
  7. MORPHINE SULFATE [Concomitant]
     Active Substance: MORPHINE SULFATE
     Dosage: 15 MG, 2X/DAY
     Dates: start: 2000
  8. ATIVAN [Concomitant]
     Active Substance: LORAZEPAM
     Dosage: 0.5 MG, AS NEEDED
     Dates: start: 201208
  9. ZANTAC [Concomitant]
     Active Substance: RANITIDINE HYDROCHLORIDE
     Dosage: 150 MG, 1X/DAY
     Dates: start: 201201
  10. ASPIRIN [Concomitant]
     Active Substance: ASPIRIN
     Dosage: 325 MG, 1X/DAY
     Dates: start: 1999
  11. VITAMIN B12 [Concomitant]
     Active Substance: CYANOCOBALAMIN
     Indication: Supplementation therapy
     Dosage: 500 UG, 1X/DAY
     Dates: start: 201207
  12. SENNOSIDES [Concomitant]
     Active Substance: SENNOSIDES
     Dosage: 25 MG, 3X/DAY
     Dates: start: 2003
  13. NOVOLOG [Concomitant]
     Active Substance: INSULIN ASPART
     Dosage: 70/30 INJECTION SLIDING SCALE
     Route: 058
  14. LANTUS [Concomitant]
     Active Substance: INSULIN GLARGINE
     Dosage: SLIDING SCALE
  15. APIDRA [Concomitant]
     Active Substance: INSULIN GLULISINE
     Dosage: SLIDING SCALE

REACTIONS (10)
  - Muscular weakness [Recovered/Resolved]
  - Alanine aminotransferase increased [Recovered/Resolved]
  - Aspartate aminotransferase increased [Recovered/Resolved]
  - Acute kidney injury [Recovered/Resolved]
  - Blood creatinine increased [Recovered/Resolved]
  - Neutrophil count decreased [Recovered/Resolved]
  - Blood creatine phosphokinase increased [Recovered/Resolved]
  - White blood cell count decreased [Recovered/Resolved]
  - Platelet count decreased [Recovered/Resolved]
  - Rhabdomyolysis [Unknown]

NARRATIVE: CASE EVENT DATE: 20121005
